FAERS Safety Report 20406618 (Version 1)
Quarter: 2022Q1

REPORT INFORMATION
  Report Type: Report from Study
  Country: US (occurrence: US)
  Receive Date: 20220131
  Receipt Date: 20220131
  Transmission Date: 20220424
  Serious: Yes (Other)
  Sender: FDA-Public Use
  Company Number: US-JAZZ-2022-US-001687

PATIENT
  Sex: Male

DRUGS (30)
  1. XYWAV [Suspect]
     Active Substance: CALCIUM OXYBATE\MAGNESIUM OXYBATE\POTASSIUM OXYBATE\SODIUM OXYBATE
     Indication: Narcolepsy
     Dosage: 2.25 GRAM, BID
     Route: 048
     Dates: start: 200702, end: 200704
  2. XYWAV [Suspect]
     Active Substance: CALCIUM OXYBATE\MAGNESIUM OXYBATE\POTASSIUM OXYBATE\SODIUM OXYBATE
     Indication: Cataplexy
     Dosage: DOSE ADJUSTMENT
     Route: 048
     Dates: start: 200706, end: 200711
  3. XYWAV [Suspect]
     Active Substance: CALCIUM OXYBATE\MAGNESIUM OXYBATE\POTASSIUM OXYBATE\SODIUM OXYBATE
     Indication: Somnolence
     Dosage: 4.5 GRAM, BID
     Route: 048
     Dates: start: 200812
  4. DOCUSATE SODIUM [Concomitant]
     Active Substance: DOCUSATE SODIUM
     Indication: Product used for unknown indication
     Dosage: 100 MG
     Dates: start: 20110101
  5. DRONABINOL [Concomitant]
     Active Substance: DRONABINOL
     Indication: Product used for unknown indication
     Dosage: 5 MG
     Dates: start: 20151201
  6. ASCORBIC ACID [Concomitant]
     Active Substance: ASCORBIC ACID
     Indication: Product used for unknown indication
     Dosage: 500 MG
     Dates: start: 20160821
  7. ASPIRIN [Concomitant]
     Active Substance: ASPIRIN
     Indication: Product used for unknown indication
     Dosage: 81 MG
     Dates: start: 20160821
  8. PROMETHAZINE [Concomitant]
     Active Substance: PROMETHAZINE HYDROCHLORIDE
     Indication: Product used for unknown indication
     Dosage: 25 MG
     Dates: start: 20161115
  9. ALLOPURINOL [Concomitant]
     Active Substance: ALLOPURINOL
     Indication: Product used for unknown indication
     Dosage: 300 MG
     Dates: start: 20170616
  10. BASAGLAR [Concomitant]
     Active Substance: INSULIN GLARGINE
     Indication: Product used for unknown indication
     Dosage: 0000
     Dates: start: 20170616
  11. NOVOLOG [Concomitant]
     Active Substance: INSULIN ASPART
     Indication: Product used for unknown indication
     Dosage: 0000
     Dates: start: 20170616
  12. GABAPENTIN [Concomitant]
     Active Substance: GABAPENTIN
     Indication: Product used for unknown indication
     Dosage: 300 MG
     Dates: start: 20171223
  13. ALBUTEROL\IPRATROPIUM [Concomitant]
     Active Substance: ALBUTEROL\IPRATROPIUM
     Indication: Product used for unknown indication
     Dosage: 0.5-3(2.5) MG/3 ML
     Dates: start: 20170908
  14. LOSARTAN POTASSIUM [Concomitant]
     Active Substance: LOSARTAN POTASSIUM
     Indication: Product used for unknown indication
     Dosage: 50 MG
     Dates: start: 20180228
  15. METOPROLOL SUCCINATE [Concomitant]
     Active Substance: METOPROLOL SUCCINATE
     Indication: Product used for unknown indication
     Dosage: 100 MG
     Dates: start: 20171223
  16. NYSTOP [Concomitant]
     Active Substance: NYSTATIN
     Indication: Product used for unknown indication
     Dosage: 0000
     Dates: start: 20151207
  17. PATANASE [Concomitant]
     Active Substance: OLOPATADINE HYDROCHLORIDE
     Indication: Product used for unknown indication
     Dosage: 0000
     Dates: start: 20180228
  18. VENTOLIN HFA [Concomitant]
     Active Substance: ALBUTEROL SULFATE
     Indication: Product used for unknown indication
     Dosage: 90 MCG
     Dates: start: 20171204
  19. POLYETHYLENE GLYCOL 3350 [Concomitant]
     Active Substance: POLYETHYLENE GLYCOL 3350
     Indication: Product used for unknown indication
     Dosage: 0000
     Dates: start: 20181211
  20. XARELTO [Concomitant]
     Active Substance: RIVAROXABAN
     Indication: Product used for unknown indication
     Dosage: 15 MG
     Dates: start: 20200508
  21. FENOFIBRATE [Concomitant]
     Active Substance: FENOFIBRATE
     Indication: Product used for unknown indication
     Dosage: 0000
     Dates: start: 20191121
  22. LEVOTHYROXINE [Concomitant]
     Active Substance: LEVOTHYROXINE
     Indication: Product used for unknown indication
     Dosage: 300 MCG
     Dates: start: 20200206
  23. GINGER ROOT [ZINGIBER OFFICINALE ROOT] [Concomitant]
     Indication: Product used for unknown indication
     Dosage: 550 MG
     Dates: start: 20210101
  24. OMEGA 3 FISH OIL [FISH OIL] [Concomitant]
     Indication: Product used for unknown indication
     Dosage: 0000
     Dates: start: 20191121
  25. DILAUDID [Concomitant]
     Active Substance: HYDROMORPHONE HYDROCHLORIDE
     Indication: Product used for unknown indication
     Dosage: 1 MG/ML
     Dates: start: 20211222
  26. SYMBICORT [Concomitant]
     Active Substance: BUDESONIDE\FORMOTEROL FUMARATE DIHYDRATE
     Indication: Product used for unknown indication
     Dosage: 0000
     Dates: start: 20190101
  27. DIGOX [DIGOXIN] [Concomitant]
     Indication: Product used for unknown indication
     Dosage: 125 MCG
     Dates: start: 20210204
  28. DULOXETINE HYDROCHLORIDE [Concomitant]
     Active Substance: DULOXETINE HYDROCHLORIDE
     Indication: Product used for unknown indication
     Dosage: 30 MG
     Dates: start: 20210317
  29. BEETROOT [Concomitant]
     Indication: Product used for unknown indication
     Dosage: 0000
     Dates: start: 20210101
  30. MUSHROOM COMPLEX [GANODERMA LUCIDUM;GRIFOLA FRONDOSA;LENTINUS EDODES] [Concomitant]
     Indication: Product used for unknown indication
     Dosage: 0000
     Dates: start: 20210101

REACTIONS (2)
  - Osteomyelitis [Unknown]
  - Hyperkalaemia [Unknown]
